FAERS Safety Report 9521613 (Version 1)
Quarter: 2013Q1

REPORT INFORMATION
  Report Type: Spontaneous
  Country: US (occurrence: None)
  Receive Date: 20130305
  Receipt Date: 20130305
  Transmission Date: 20140127
  Serious: Yes (Other)
  Sender: FDA-Public Use
  Company Number: 163-21880-12081540

PATIENT
  Age: 61 Year
  Sex: Male
  Weight: 85.28 kg

DRUGS (21)
  1. REVLIMID (LENALIDOMIDE) (CAPSULES) [Suspect]
     Indication: PLASMA CELL MYELOMA
     Dosage: 10 MG, 14 IN 21 D, PO
     Route: 048
     Dates: start: 20120723, end: 20120808
  2. SUCRALFATE (SUCRALFATE) (UNKNOWN) [Concomitant]
  3. GABAPENTIN (GABAPENTIN) (UNKNOWN) (GABAPENTIN) [Concomitant]
  4. CARISOPRODOL (CARISOPRODOL) (UNKNONW) [Concomitant]
  5. ONDANSETRON (ONDANSETRON) (UNKNOWN) [Concomitant]
  6. LORAZEPAM (LORAZEPAM) (UNKNOWN) [Concomitant]
  7. HYDROMORPHONE (HYDROMORPHONE) (UNKNOWN) (HYDROMORPHONE) [Concomitant]
  8. ESOMEPRAZOLE (ESOMEPRAZOLE) (UNKNOWN) [Concomitant]
  9. TEMAZEPAM (TEMAZEPAM) (UNKNOWN) [Concomitant]
  10. CETRIZINE (CETIRIZINE HYDROCHLORIDE) (UNKNOWN) [Concomitant]
  11. IPRAATROPIUM (IPRATROPIUM) (UNKNOWN) [Concomitant]
  12. ALBUTEROL (SALBUTAMOL) (UNKNOWN) [Concomitant]
  13. TESTOSTERONE (TESTOSTERONE) (GEL) [Concomitant]
  14. POLYETHYLENE GLYCOL 3350 (MACROGOL 3350) (UNKNOWN) [Concomitant]
  15. CALCIUM + VITAMIN D (LEKOVIT CA) (UNKNOWN) [Concomitant]
  16. PAIN PUMP (ANALGESICS) (UNKNOWN) [Concomitant]
  17. NEXIUM (ESOMEPRAZOLE) (UNKNOWN) [Concomitant]
  18. NEURONTIN (GABAPENTIN) (UNKNOWN) [Concomitant]
  19. SOMA (CARISOPRODOL) (UNKNOWN) [Concomitant]
  20. ZOFRAN (ONDANSETRON HYDROCHLORIDE) (UNKNOWN) [Concomitant]
  21. DILAUDID (HYDROMORPHONE HYDROCHLORIDE) (UNKKNOWN) [Concomitant]

REACTIONS (1)
  - Pancytopenia [None]
